FAERS Safety Report 6257603-1 (Version None)
Quarter: 2009Q3

REPORT INFORMATION
  Report Type: 
  Country: None (occurrence: None)
  Receive Date: 20090706
  Receipt Date: 20090625
  Transmission Date: 20100115
  Serious: Yes (Other)
  Sender: FDA-Public Use
  Company Number: AU-ASTRAZENECA-2009AP01914

PATIENT
  Age: 23382 Day
  Sex: Female

DRUGS (4)
  1. ARIMIDEX [Suspect]
     Indication: BREAST CANCER
     Route: 048
     Dates: start: 20050901, end: 20080901
  2. ARIMIDEX [Suspect]
     Route: 048
     Dates: start: 20090101
  3. GOLD [Concomitant]
     Indication: RHEUMATOID ARTHRITIS
     Dates: end: 20080901
  4. METHOTREXATE [Concomitant]
     Indication: RHEUMATOID ARTHRITIS
     Dates: end: 20080901

REACTIONS (2)
  - INTESTINAL RESECTION [None]
  - RHEUMATOID ARTHRITIS [None]
